FAERS Safety Report 6578633-6 (Version None)
Quarter: 2010Q1

REPORT INFORMATION
  Report Type: 
  Country: None (occurrence: None)
  Receive Date: 20100211
  Receipt Date: 20100125
  Transmission Date: 20100710
  Serious: Yes (Hospitalization)
  Sender: FDA-Public Use
  Company Number: PHHY2010DE04094

PATIENT
  Sex: Female
  Weight: 82 kg

DRUGS (11)
  1. ALISKIREN ALI+ [Suspect]
     Indication: HYPERTENSION
     Dosage: UNK
     Dates: start: 20081211
  2. INSULIN [Concomitant]
     Indication: DIABETES MELLITUS
  3. ACE INHIBITOR NOS [Concomitant]
  4. QUERTO [Concomitant]
     Indication: CORONARY ARTERY DISEASE
     Dosage: 25 MG PER DAY
     Route: 048
     Dates: start: 20070630
  5. AMLODIPINE [Concomitant]
     Indication: HYPERTENSION
     Dosage: 10 MG PER DAY
     Route: 048
     Dates: start: 20081211
  6. TOREM [Concomitant]
     Indication: CARDIAC FAILURE
     Dosage: 10 MG PER DAY
     Route: 048
     Dates: start: 20081211
  7. ANTIADRENERGIC AGENTS, CENTRALLY ACTING [Concomitant]
  8. FALITHROM [Concomitant]
     Indication: AORTIC VALVE REPLACEMENT
     Dosage: 1.5 MG PER DAY
     Route: 048
  9. STATIN [Concomitant]
  10. ATACAND [Concomitant]
     Indication: HYPERTENSION
     Dosage: 16 MG PER DAY
     Route: 048
     Dates: start: 20081211
  11. STARLIX [Concomitant]
     Indication: DIABETES MELLITUS
     Dosage: 360 MG PER DAY
     Route: 048
     Dates: start: 20081211

REACTIONS (3)
  - ACUTE MYOCARDIAL INFARCTION [None]
  - CORONARY ARTERIAL STENT INSERTION [None]
  - VENOUS STENOSIS [None]
